FAERS Safety Report 12530798 (Version 3)
Quarter: 2016Q3

REPORT INFORMATION
  Report Type: Spontaneous
  Country: US (occurrence: US)
  Receive Date: 20160706
  Receipt Date: 20160808
  Transmission Date: 20161109
  Serious: No
  Sender: FDA-Public Use
  Company Number: US-BEH-2016057754

PATIENT
  Sex: Male
  Weight: 30 kg

DRUGS (27)
  1. DIPHENHYDRAMINE. [Concomitant]
     Active Substance: DIPHENHYDRAMINE
  2. CREON [Concomitant]
     Active Substance: PANCRELIPASE AMYLASE\PANCRELIPASE LIPASE\PANCRELIPASE PROTEASE
  3. CALCIUM [Concomitant]
     Active Substance: CALCIUM
  4. MAGNESIUM [Concomitant]
     Active Substance: MAGNESIUM
  5. COLACE [Concomitant]
     Active Substance: DOCUSATE SODIUM
  6. LIPITOR [Concomitant]
     Active Substance: ATORVASTATIN CALCIUM
  7. L-M-X [Concomitant]
  8. NORVASC [Concomitant]
     Active Substance: AMLODIPINE BESYLATE
  9. MYCOPHENOLATE [Concomitant]
     Active Substance: MYCOPHENOLIC ACID
  10. PROGRAF [Concomitant]
     Active Substance: TACROLIMUS\TACROLIMUS ANHYDROUS
  11. VORICONAZOLE. [Concomitant]
     Active Substance: VORICONAZOLE
  12. AZITHROMYCIN ANHYDROUS. [Concomitant]
     Active Substance: AZITHROMYCIN ANHYDROUS
  13. BACTRIM DS [Concomitant]
     Active Substance: SULFAMETHOXAZOLE\TRIMETHOPRIM
  14. PREVACID [Concomitant]
     Active Substance: LANSOPRAZOLE
  15. HIZENTRA [Suspect]
     Active Substance: HUMAN IMMUNOGLOBULIN G
     Indication: HYPOGAMMAGLOBULINAEMIA
     Route: 058
  16. FOSAMAX [Concomitant]
     Active Substance: ALENDRONATE SODIUM
  17. VITAMIN D3 [Concomitant]
     Active Substance: CHOLECALCIFEROL
  18. IRON [Concomitant]
     Active Substance: IRON
  19. URSODIOL. [Concomitant]
     Active Substance: URSODIOL
  20. EPIPEN [Concomitant]
     Active Substance: EPINEPHRINE
  21. HUMALOG [Concomitant]
     Active Substance: INSULIN LISPRO
  22. VALCYTE [Concomitant]
     Active Substance: VALGANCICLOVIR HYDROCHLORIDE
  23. BIOTIN [Concomitant]
     Active Substance: BIOTIN
  24. GABAPENTIN. [Concomitant]
     Active Substance: GABAPENTIN
  25. AQUADEKS [Concomitant]
     Active Substance: MINERALS\VITAMINS
  26. ACETAMINOPHEN. [Concomitant]
     Active Substance: ACETAMINOPHEN
  27. PREDNISONE. [Concomitant]
     Active Substance: PREDNISONE

REACTIONS (1)
  - Muscle spasms [Unknown]
